FAERS Safety Report 12499885 (Version 1)
Quarter: 2016Q2

REPORT INFORMATION
  Report Type: Report from Study
  Country: US (occurrence: US)
  Receive Date: 20160627
  Receipt Date: 20160627
  Transmission Date: 20160815
  Serious: Yes (Hospitalization, Other)
  Sender: FDA-Public Use
  Company Number: US-JNJFOC-20160419315

PATIENT
  Age: 65 Year
  Sex: Female
  Weight: 54 kg

DRUGS (15)
  1. PROTONIX [Concomitant]
     Active Substance: PANTOPRAZOLE SODIUM
     Dosage: 40 MG, BID
     Route: 048
  2. IMBRUVICA [Suspect]
     Active Substance: IBRUTINIB
     Indication: WALDENSTROM^S MACROGLOBULINAEMIA
     Dosage: 140 MG, QOD, ALTERNATING WITH 280 MG
     Route: 048
     Dates: start: 20160204, end: 201602
  3. IMBRUVICA [Suspect]
     Active Substance: IBRUTINIB
     Indication: WALDENSTROM^S MACROGLOBULINAEMIA
     Dosage: 140 MG, QOD, ALTERNATING WITH 280 MG
     Route: 048
     Dates: start: 20160224, end: 20160503
  4. TYLENOL [Concomitant]
     Active Substance: ACETAMINOPHEN
     Dosage: 500 MG, TWO TABLETS IN AM, ONE AT NOON, ONE AT DINNER WITH ADDTIONAL TABLET AS NEEDED, MAX 5 TABLETS
     Route: 048
  5. MIRALAX [Concomitant]
     Active Substance: POLYETHYLENE GLYCOL 3350
     Route: 048
  6. IMBRUVICA [Suspect]
     Active Substance: IBRUTINIB
     Indication: WALDENSTROM^S MACROGLOBULINAEMIA
     Dosage: 280 MG, QOD, ALTERNATING WITH 140 MG
     Route: 048
     Dates: start: 20151217, end: 201602
  7. ASPIRIN. [Concomitant]
     Active Substance: ASPIRIN
     Route: 048
  8. CALCIUM CARBONATE W/ERGOCALCIFEROL [Concomitant]
     Dosage: 1 TAB, QD
     Route: 048
  9. PLAVIX [Concomitant]
     Active Substance: CLOPIDOGREL BISULFATE
     Route: 048
  10. VAGIFEM [Concomitant]
     Active Substance: ESTRADIOL
     Route: 067
  11. NEURONTIN [Concomitant]
     Active Substance: GABAPENTIN
     Route: 048
  12. ATIVAN [Concomitant]
     Active Substance: LORAZEPAM
     Dosage: 1 MG, QHS
     Route: 048
  13. SENOKOT-S [Concomitant]
     Active Substance: DOCUSATE SODIUM\SENNOSIDES
     Dosage: 1 TAB, QD
     Route: 048
  14. IMBRUVICA [Suspect]
     Active Substance: IBRUTINIB
     Indication: WALDENSTROM^S MACROGLOBULINAEMIA
     Dosage: 280 MG, QOD, ALTERNATING WITH 140
     Route: 048
     Dates: start: 20160224, end: 20160503
  15. MULTIVITAMINS + MINERALS PLUS LUTEIN [Concomitant]
     Active Substance: MINERALS\VITAMINS
     Dosage: 1 TAB, QD
     Route: 048

REACTIONS (12)
  - Neuropathy peripheral [Recovering/Resolving]
  - Pneumonia [Recovered/Resolved]
  - Nephrolithiasis [Unknown]
  - Red blood cell count decreased [Not Recovered/Not Resolved]
  - Urinary tract infection [Unknown]
  - Asthenia [Unknown]
  - Arthropathy [Unknown]
  - Intracranial aneurysm [Recovered/Resolved]
  - Viral infection [Recovered/Resolved]
  - Stress fracture [Not Recovered/Not Resolved]
  - Back pain [Unknown]
  - Neck pain [Recovering/Resolving]

NARRATIVE: CASE EVENT DATE: 2016
